FAERS Safety Report 10570098 (Version 1)
Quarter: 2014Q4

REPORT INFORMATION
  Report Type: Spontaneous
  Country: US (occurrence: None)
  Receive Date: 20141106
  Receipt Date: 20141106
  Transmission Date: 20150529
  Serious: Yes (Life-Threatening)
  Sender: FDA-Public Use
  Company Number: None

PATIENT
  Age: 68 Year
  Sex: Male
  Weight: 83.92 kg

DRUGS (1)
  1. PROPOFOL. [Suspect]
     Active Substance: PROPOFOL
     Indication: PREOPERATIVE CARE
     Dates: start: 20140723, end: 20140820

REACTIONS (2)
  - Heart rate increased [None]
  - Atrial fibrillation [None]

NARRATIVE: CASE EVENT DATE: 20140915
